FAERS Safety Report 12115544 (Version 1)
Quarter: 2016Q1

REPORT INFORMATION
  Report Type: Spontaneous
  Country: PH (occurrence: PH)
  Receive Date: 20160225
  Receipt Date: 20160225
  Transmission Date: 20160526
  Serious: Yes (Hospitalization)
  Sender: FDA-Public Use
  Company Number: PH-IMPAX LABORATORIES, INC-2016-IPXL-00185

PATIENT
  Age: 4 Year
  Sex: Male

DRUGS (1)
  1. ALBENZA [Suspect]
     Active Substance: ALBENDAZOLE
     Indication: HELMINTHIC INFECTION
     Dosage: UNK
     Route: 065
     Dates: start: 20160128

REACTIONS (3)
  - Anaemia [Unknown]
  - Gastroenteritis [Unknown]
  - Dehydration [Unknown]

NARRATIVE: CASE EVENT DATE: 20160129
